FAERS Safety Report 15587102 (Version 1)
Quarter: 2018Q4

REPORT INFORMATION
  Report Type: Spontaneous
  Country: US (occurrence: US)
  Receive Date: 20181101
  Receipt Date: 20181101
  Transmission Date: 20190205
  Serious: Yes (Hospitalization)
  Sender: FDA-Public Use
  Company Number: None

PATIENT
  Age: 70 Year
  Sex: Female

DRUGS (15)
  1. WARFARIN [Concomitant]
     Active Substance: WARFARIN
  2. MONTELUKAST [Concomitant]
     Active Substance: MONTELUKAST SODIUM
  3. TACROLIMUS 1MG [Suspect]
     Active Substance: TACROLIMUS
     Indication: LUNG TRANSPLANT
     Route: 048
     Dates: start: 20161108
  4. AZITHROMYCIN ANHYDROUS. [Concomitant]
     Active Substance: AZITHROMYCIN ANHYDROUS
  5. RANITIDINE. [Concomitant]
     Active Substance: RANITIDINE
  6. COUMADIN [Concomitant]
     Active Substance: WARFARIN SODIUM
  7. AZELASTINE. [Concomitant]
     Active Substance: AZELASTINE HYDROCHLORIDE
  8. IPRATROPIUM [Concomitant]
     Active Substance: IPRATROPIUM
  9. ALENDRONATE [Concomitant]
     Active Substance: ALENDRONATE SODIUM
  10. PREDNISONE. [Concomitant]
     Active Substance: PREDNISONE
  11. VITAMIN D [Concomitant]
     Active Substance: CHOLECALCIFEROL
  12. PRAVASTATIN. [Concomitant]
     Active Substance: PRAVASTATIN
  13. ELIQUIS [Concomitant]
     Active Substance: APIXABAN
  14. AZATHIOPRINE 50MG [Suspect]
     Active Substance: AZATHIOPRINE
     Dates: start: 20170427
  15. LEVOTHYROXIN [Concomitant]
     Active Substance: LEVOTHYROXINE

REACTIONS (1)
  - Product dose omission [None]
